FAERS Safety Report 5922189-5 (Version None)
Quarter: 2008Q3

REPORT INFORMATION
  Report Type: 
  Country: None (occurrence: None)
  Receive Date: 20080909
  Receipt Date: 20080605
  Transmission Date: 20090109
  Serious: Yes (Hospitalization)
  Sender: FDA-Public Use
  Company Number: 163-20785-08060386 (0)

PATIENT
  Age: 67 Year
  Sex: Female

DRUGS (10)
  1. THALOMID [Suspect]
     Indication: MULTIPLE MYELOMA
     Dosage: 50 MG, 1 IN 1 D, ORAL : 100 MG, 1 IN 1 D, ORAL : 200-50MG, DAILY, ORAL
     Route: 048
     Dates: start: 20020715, end: 20030501
  2. THALOMID [Suspect]
     Indication: MULTIPLE MYELOMA
     Dosage: 50 MG, 1 IN 1 D, ORAL : 100 MG, 1 IN 1 D, ORAL : 200-50MG, DAILY, ORAL
     Route: 048
     Dates: start: 20040407, end: 20051001
  3. THALOMID [Suspect]
     Indication: MULTIPLE MYELOMA
     Dosage: 50 MG, 1 IN 1 D, ORAL : 100 MG, 1 IN 1 D, ORAL : 200-50MG, DAILY, ORAL
     Route: 048
     Dates: start: 20051018
  4. COUMADIN [Concomitant]
  5. LISINOPRIL [Concomitant]
  6. CITALOPRAM HYDROBROMIDE [Concomitant]
  7. CLONAZEPAM [Concomitant]
  8. BACLOFIN [Concomitant]
  9. MULTI-VITAMINS [Concomitant]
  10. OSCAL (CALCIUM CARBONATE) [Concomitant]

REACTIONS (2)
  - NEUROPATHY PERIPHERAL [None]
  - THROMBOSIS [None]
